FAERS Safety Report 25277809 (Version 1)
Quarter: 2025Q2

REPORT INFORMATION
  Report Type: Spontaneous
  Country: US (occurrence: None)
  Receive Date: 20250507
  Receipt Date: 20250507
  Transmission Date: 20250716
  Serious: Yes (Hospitalization)
  Sender: FDA-CTU
  Company Number: None

PATIENT
  Age: 90 Year
  Sex: Female
  Weight: 73.2 kg

DRUGS (2)
  1. FEMARA [Suspect]
     Active Substance: LETROZOLE
  2. PALBOCICLIB [Suspect]
     Active Substance: PALBOCICLIB

REACTIONS (4)
  - Vomiting [None]
  - Diarrhoea [None]
  - Rectal haemorrhage [None]
  - Colitis [None]

NARRATIVE: CASE EVENT DATE: 20250427
